FAERS Safety Report 4679595-9 (Version None)
Quarter: 2005Q2

REPORT INFORMATION
  Report Type: 
  Country: None (occurrence: None)
  Receive Date: 20050602
  Receipt Date: 20050520
  Transmission Date: 20051028
  Serious: Yes (Life-Threatening)
  Sender: FDA-Public Use
  Company Number: GR-BOEHRINGER INGELHEIM PHARMACEUTICALS, INC.-2005-DE-01941GD

PATIENT
  Age: 60 Year
  Sex: Male

DRUGS (7)
  1. MEXILETINE HCL [Suspect]
     Indication: VENTRICULAR TACHYCARDIA
  2. LIDOCAINE [Suspect]
     Indication: VENTRICULAR TACHYCARDIA
     Dosage: 4 MG/MIN
     Route: 042
  3. LIDOCAINE [Suspect]
     Route: 042
  4. AMIODARONE [Suspect]
     Indication: VENTRICULAR TACHYCARDIA
     Dosage: 40 MG/H
     Route: 042
  5. AMIODARONE [Suspect]
     Route: 048
  6. AMIODARONE [Suspect]
     Dosage: BOLUS
  7. METOPROLOL [Suspect]
     Indication: VENTRICULAR TACHYCARDIA
     Dosage: INITIAL DOSE OF 12.5 MG TITRATED TO 200 MG DAILY
     Route: 048

REACTIONS (4)
  - DRUG INEFFECTIVE [None]
  - LOSS OF CONSCIOUSNESS [None]
  - TACHYARRHYTHMIA [None]
  - VENTRICULAR TACHYCARDIA [None]
